FAERS Safety Report 4354530-1 (Version None)
Quarter: 2004Q2

REPORT INFORMATION
  Report Type: 
  Country: None (occurrence: None)
  Receive Date: 20040503
  Receipt Date: 20040421
  Transmission Date: 20050107
  Serious: Yes (Other)
  Sender: FDA-Public Use
  Company Number: US-JNJFOC-20040404885

PATIENT
  Age: 75 Year
  Sex: Male
  Weight: 101.6057 kg

DRUGS (8)
  1. ULTRAM [Suspect]
     Indication: PAIN
     Dosage: ORAL
     Route: 048
     Dates: start: 20010101
  2. HYDROCHOLOROTHIAZIDE (HYDROCHLOROTHIAZIDE) [Concomitant]
  3. ASPIRIN [Concomitant]
  4. PLAVIX [Concomitant]
  5. VASOTEC [Concomitant]
  6. LOPRESSOR [Concomitant]
  7. ELAVIL [Concomitant]
  8. RESTORIL [Concomitant]

REACTIONS (2)
  - HALLUCINATION [None]
  - MYOCARDIAL INFARCTION [None]
